FAERS Safety Report 17401422 (Version 1)
Quarter: 2020Q1

REPORT INFORMATION
  Report Type: Spontaneous
  Country: US (occurrence: US)
  Receive Date: 20200127
  Receipt Date: 20200127
  Transmission Date: 20200409
  Serious: No
  Sender: FDA-Public Use
  Company Number: None

PATIENT
  Age: 72 Year
  Sex: Female

DRUGS (3)
  1. TADALAFIL 20MG TAB [Suspect]
     Active Substance: TADALAFIL
     Route: 048
     Dates: start: 201605
  2. MYCOPHENOLATE MOFETIL TABLET [Concomitant]
     Active Substance: MYCOPHENOLATE MOFETIL
     Dates: start: 20151002
  3. LETAIRIS [Concomitant]
     Active Substance: AMBRISENTAN
     Dates: start: 20160505

REACTIONS (1)
  - Lung neoplasm malignant [None]

NARRATIVE: CASE EVENT DATE: 20200127
